FAERS Safety Report 9200185 (Version 1)
Quarter: 2013Q1

REPORT INFORMATION
  Report Type: Spontaneous
  Country: US (occurrence: US)
  Receive Date: 20130329
  Receipt Date: 20130329
  Transmission Date: 20140127
  Serious: Yes (Other)
  Sender: FDA-Public Use
  Company Number: US-TEVA-395321USA

PATIENT
  Sex: 0

DRUGS (1)
  1. TREANDA [Suspect]
     Indication: HODGKIN^S DISEASE
     Route: 042

REACTIONS (2)
  - Haematuria [Unknown]
  - Off label use [Unknown]
